FAERS Safety Report 7651240-X (Version None)
Quarter: 2011Q3

REPORT INFORMATION
  Report Type: 
  Country: None (occurrence: None)
  Receive Date: 20110802
  Receipt Date: 20110727
  Transmission Date: 20111222
  Serious: Yes (Hospitalization)
  Sender: FDA-Public Use
  Company Number: US-B.I. PHARMACEUTICALS,INC./RIDGEFIELD-2011-BP-10689BP

PATIENT
  Sex: Female
  Weight: 83.46 kg

DRUGS (5)
  1. METFORMIN HCL [Concomitant]
  2. PRADAXA [Suspect]
     Route: 048
  3. SYNTHROID [Concomitant]
  4. LASIX [Concomitant]
  5. CLONIDINE [Concomitant]

REACTIONS (2)
  - PLEURAL HAEMORRHAGE [None]
  - PNEUMONIA [None]
